FAERS Safety Report 7898638-2 (Version None)
Quarter: 2011Q4

REPORT INFORMATION
  Report Type: 
  Country: None (occurrence: None)
  Receive Date: 20111107
  Receipt Date: 20111107
  Transmission Date: 20120403
  Serious: Yes (Other)
  Sender: FDA-Public Use
  Company Number: None

PATIENT
  Sex: Female
  Weight: 56.699 kg

DRUGS (9)
  1. ALPRAZOLAM [Concomitant]
     Route: 048
  2. OXYBUTYNIN [Concomitant]
     Route: 048
  3. OSMOPREP [Suspect]
  4. CYMBALTA [Concomitant]
     Route: 048
  5. DIPHEN/ATROP [Concomitant]
     Route: 048
  6. TYLENOL EXTRA STRENGTH [Concomitant]
     Route: 048
  7. IBUPROFEN (ADVIL) [Concomitant]
     Route: 048
  8. VYTORIN [Concomitant]
     Route: 048
  9. ALPRAZOLAM [Concomitant]

REACTIONS (5)
  - RETCHING [None]
  - ABDOMINAL DISTENSION [None]
  - ANAESTHETIC COMPLICATION [None]
  - NAUSEA [None]
  - VOMITING [None]
